FAERS Safety Report 11440662 (Version 1)
Quarter: 2015Q3

REPORT INFORMATION
  Report Type: Spontaneous
  Country: US (occurrence: US)
  Receive Date: 20150821
  Receipt Date: 20150821
  Transmission Date: 20151125
  Serious: No
  Sender: FDA-Public Use
  Company Number: US-ELI_LILLY_AND_COMPANY-US200707007316

PATIENT
  Age: 61 Year
  Sex: Male

DRUGS (12)
  1. ACTOS [Concomitant]
     Active Substance: PIOGLITAZONE HYDROCHLORIDE
     Dosage: 30 MG, DAILY (1/D)
  2. OTHER CHOLESTEROL AND TRIGLYCERIDE REDUCERS [Concomitant]
  3. CALCIUM [Concomitant]
     Active Substance: CALCIUM
  4. DIOVAN [Concomitant]
     Active Substance: VALSARTAN
     Dosage: 160 MG, UNK
  5. ZOCOR [Concomitant]
     Active Substance: SIMVASTATIN
     Dosage: 20 MG, UNK
  6. CYMBALTA [Suspect]
     Active Substance: DULOXETINE HYDROCHLORIDE
     Indication: BIPOLAR DISORDER
     Dosage: 60 MG, UNK
     Dates: start: 2005, end: 200706
  7. EFFEXOR [Concomitant]
     Active Substance: VENLAFAXINE HYDROCHLORIDE
     Dosage: 375 MG, UNK
  8. ALBUTEROL. [Concomitant]
     Active Substance: ALBUTEROL
     Dosage: 4 MG, UNK
  9. VITAMIN C [Concomitant]
     Active Substance: ASCORBIC ACID
  10. ASPIRIN. [Concomitant]
     Active Substance: ASPIRIN
  11. MOBIC [Concomitant]
     Active Substance: MELOXICAM
  12. GLUCOPHAGE [Concomitant]
     Active Substance: METFORMIN HYDROCHLORIDE

REACTIONS (2)
  - Pain [Not Recovered/Not Resolved]
  - Insomnia [Not Recovered/Not Resolved]

NARRATIVE: CASE EVENT DATE: 200706
